FAERS Safety Report 7782503-5 (Version None)
Quarter: 2011Q3

REPORT INFORMATION
  Report Type: 
  Country: None (occurrence: None)
  Receive Date: 20110928
  Receipt Date: 20110916
  Transmission Date: 20111222
  Serious: Yes (Death)
  Sender: FDA-Public Use
  Company Number: DE-CELGENEUS-062-50794-11012711

PATIENT
  Age: 65 Year
  Sex: Female
  Weight: 83 kg

DRUGS (6)
  1. MCP [Concomitant]
     Indication: CHEMOTHERAPY
     Dosage: 40 DROPS
     Route: 065
     Dates: start: 20110124, end: 20110125
  2. PREDNISONE [Concomitant]
     Indication: CHEMOTHERAPY
     Dosage: 10 MILLIGRAM
     Route: 048
  3. VIDAZA [Suspect]
     Route: 058
     Dates: start: 20110103
  4. VIDAZA [Suspect]
     Route: 058
     Dates: start: 20110124, end: 20110125
  5. AZATHIOPRINE [Concomitant]
     Route: 065
     Dates: start: 20100101, end: 20100101
  6. PREDNISONE [Concomitant]
     Route: 065

REACTIONS (5)
  - PULMONARY EMBOLISM [None]
  - AORTIC RUPTURE [None]
  - CARDIAC ARREST [None]
  - MYOCARDIAL INFARCTION [None]
  - CIRCULATORY COLLAPSE [None]
